FAERS Safety Report 4504135-4 (Version None)
Quarter: 2004Q4

REPORT INFORMATION
  Report Type: 
  Country: None (occurrence: None)
  Receive Date: 20041115
  Receipt Date: 20041109
  Transmission Date: 20050328
  Serious: Yes (Other)
  Sender: FDA-Public Use
  Company Number: 2004-09-1642

PATIENT
  Age: 50 Year
  Sex: Male
  Weight: 87.0906 kg

DRUGS (6)
  1. PEGASYS [Suspect]
     Indication: HEPATITIS C
     Dosage: 180 MCG QWK SUBCUTANEOUS
     Route: 058
     Dates: start: 20031005, end: 20040219
  2. REBETOL [Suspect]
     Indication: HEPATITIS C
     Dosage: 600 MG BID ORAL
     Route: 048
     Dates: start: 20031005, end: 20040219
  3. KALETRA [Concomitant]
  4. ABACAVIR [Concomitant]
  5. EFAVIRENZ [Concomitant]
  6. HYDROXYZINE [Concomitant]

REACTIONS (6)
  - ANAEMIA [None]
  - CORNEAL ULCER [None]
  - HYPERTRIGLYCERIDAEMIA [None]
  - MORAXELLA INFECTION [None]
  - NEUTROPENIA [None]
  - THERAPY NON-RESPONDER [None]
